FAERS Safety Report 6031134-6 (Version None)
Quarter: 2008Q4

REPORT INFORMATION
  Report Type: 
  Country: None (occurrence: None)
  Receive Date: 20081222
  Receipt Date: 20081009
  Transmission Date: 20090506
  Serious: No
  Sender: FDA-Public Use
  Company Number: US-WYE-H06341008

PATIENT
  Age: 63 Year
  Sex: Female
  Weight: 77.18 kg

DRUGS (3)
  1. PRISTIQ [Suspect]
     Indication: ANXIETY
     Dosage: 50 MG 1X PER 1 DAY, ORAL
     Route: 048
     Dates: start: 20081001
  2. PRISTIQ [Suspect]
     Indication: DEPRESSION
     Dosage: 50 MG 1X PER 1 DAY, ORAL
     Route: 048
     Dates: start: 20081001
  3. KLONOPIN [Concomitant]

REACTIONS (11)
  - ABNORMAL DREAMS [None]
  - DIARRHOEA [None]
  - DISTURBANCE IN ATTENTION [None]
  - DRY MOUTH [None]
  - FEELING ABNORMAL [None]
  - HEADACHE [None]
  - INSOMNIA [None]
  - MIDDLE INSOMNIA [None]
  - PALPITATIONS [None]
  - PARAESTHESIA [None]
  - TINNITUS [None]
